FAERS Safety Report 5323906-8 (Version None)
Quarter: 2007Q2

REPORT INFORMATION
  Report Type: 
  Country: None (occurrence: None)
  Receive Date: 20070509
  Receipt Date: 20070509
  Transmission Date: 20071010
  Serious: Yes (Life-Threatening)
  Sender: FDA-Public Use
  Company Number: None

PATIENT
  Age: 44 Year
  Sex: Female
  Weight: 99.3 kg

DRUGS (3)
  1. ONDANSETRON 2MG/ML BEDFORD LABS [Suspect]
     Indication: CHEMOTHERAPY
     Dosage: 4MG X3 DOSES OVER - 1H IV
     Route: 042
     Dates: start: 20070503, end: 20070503
  2. ONDANSETRON 2MG/ML BEDFORD LABS [Suspect]
     Indication: NAUSEA
     Dosage: 4MG X3 DOSES OVER - 1H IV
     Route: 042
     Dates: start: 20070503, end: 20070503
  3. ONDANSETRON 2MG/ML BEDFORD LABS [Suspect]
     Indication: VOMITING
     Dosage: 4MG X3 DOSES OVER - 1H IV
     Route: 042
     Dates: start: 20070503, end: 20070503

REACTIONS (11)
  - ANOXIC ENCEPHALOPATHY [None]
  - CARDIAC ARREST [None]
  - CARDIOMYOPATHY [None]
  - CHEST DISCOMFORT [None]
  - MUSCULOSKELETAL STIFFNESS [None]
  - PULMONARY OEDEMA [None]
  - RESPIRATORY FAILURE [None]
  - TORSADE DE POINTES [None]
  - TROPONIN INCREASED [None]
  - UNRESPONSIVE TO STIMULI [None]
  - VENTRICULAR FIBRILLATION [None]
